FAERS Safety Report 9573318 (Version 2)
Quarter: 2013Q4

REPORT INFORMATION
  Report Type: Spontaneous
  Country: US (occurrence: US)
  Receive Date: 20131001
  Receipt Date: 20131014
  Transmission Date: 20140711
  Serious: Yes (Hospitalization, Other)
  Sender: FDA-Public Use
  Company Number: US-BAXTER-2013BAX037778

PATIENT
  Age: 50 Year
  Sex: Female

DRUGS (7)
  1. GAMMAGARD LIQUID [Suspect]
     Indication: MYASTHENIA GRAVIS
     Route: 042
     Dates: start: 20130919, end: 20130919
  2. GAMMAGARD LIQUID [Suspect]
     Indication: OFF LABEL USE
     Route: 042
     Dates: start: 201205
  3. SOLUMEDROL [Concomitant]
     Indication: PREMEDICATION
  4. BENADRYL [Concomitant]
     Indication: PREMEDICATION
  5. TYLENOL [Concomitant]
     Indication: PREMEDICATION
  6. DILAUDID [Concomitant]
     Indication: HEADACHE
     Route: 065
     Dates: start: 20130919
  7. PHENERGAN [Concomitant]
     Indication: NAUSEA
     Route: 065

REACTIONS (5)
  - Meningitis aseptic [Recovered/Resolved]
  - Bacterial infection [Unknown]
  - Neck pain [Recovered/Resolved]
  - Musculoskeletal pain [Recovered/Resolved]
  - Spinal pain [Recovered/Resolved]
